FAERS Safety Report 17227012 (Version 1)
Quarter: 2020Q1

REPORT INFORMATION
  Report Type: Spontaneous
  Country: IE (occurrence: IE)
  Receive Date: 20200103
  Receipt Date: 20200103
  Transmission Date: 20200409
  Serious: Yes (Death, Hospitalization)
  Sender: FDA-Public Use
  Company Number: IE-JNJFOC-20191244792

PATIENT
  Age: 29 Year
  Sex: Female

DRUGS (1)
  1. PARACETAMOL [Suspect]
     Active Substance: ACETAMINOPHEN
     Indication: PAIN
     Route: 065
     Dates: start: 20180401

REACTIONS (6)
  - Hepatic failure [Fatal]
  - Malaise [Fatal]
  - Multiple organ dysfunction syndrome [Fatal]
  - Accidental overdose [Fatal]
  - Toxicity to various agents [Fatal]
  - Somnolence [Fatal]

NARRATIVE: CASE EVENT DATE: 20180401
